FAERS Safety Report 15066890 (Version 2)
Quarter: 2018Q3

REPORT INFORMATION
  Report Type: Report from Study
  Country: FR (occurrence: FR)
  Receive Date: 20180626
  Receipt Date: 20180725
  Transmission Date: 20181010
  Serious: Yes (Death, Hospitalization, Other)
  Sender: FDA-Public Use
  Company Number: FR-PFIZER INC-2018252130

PATIENT
  Age: 66 Year
  Sex: Male

DRUGS (3)
  1. CARBOPLATIN. [Suspect]
     Active Substance: CARBOPLATIN
     Indication: LUNG NEOPLASM MALIGNANT
     Dosage: 9 CYCLES
  2. NIVOLUMAB [Suspect]
     Active Substance: NIVOLUMAB
     Indication: LUNG NEOPLASM MALIGNANT
     Dosage: 230 MG, EVERY 15 DAYS
     Route: 042
     Dates: start: 20171026, end: 20180515
  3. CISPLATIN. [Suspect]
     Active Substance: CISPLATIN
     Indication: LUNG NEOPLASM MALIGNANT
     Dosage: 3 CYCLES

REACTIONS (6)
  - Constipation [Fatal]
  - Pleural effusion [Fatal]
  - Neoplasm progression [Fatal]
  - Fall [Fatal]
  - Asthenia [Fatal]
  - Limb discomfort [Fatal]

NARRATIVE: CASE EVENT DATE: 20171106
